FAERS Safety Report 11266439 (Version 2)
Quarter: 2016Q2

REPORT INFORMATION
  Report Type: Spontaneous
  Country: FR (occurrence: FR)
  Receive Date: 20150713
  Receipt Date: 20160520
  Transmission Date: 20160815
  Serious: Yes (Life-Threatening)
  Sender: FDA-Public Use
  Company Number: PHHY2015FR080339

PATIENT
  Age: 59 Year
  Sex: Male

DRUGS (18)
  1. VANCOMYCIN SANDOZ [Suspect]
     Active Substance: VANCOMYCIN
     Indication: SEPTIC SHOCK
     Dosage: 1 G, QD
     Route: 042
  2. TARGOCID [Suspect]
     Active Substance: TEICOPLANIN
     Dosage: 800 MG, PER 12 HOURS
     Route: 042
  3. TARGOCID [Suspect]
     Active Substance: TEICOPLANIN
     Dosage: 800 MG, PER 12 HOURS
     Route: 042
  4. VANCOMYCIN SANDOZ [Suspect]
     Active Substance: VANCOMYCIN
     Dosage: 1.5 G, QD
     Route: 042
  5. TARGOCID [Suspect]
     Active Substance: TEICOPLANIN
     Indication: SEPTIC SHOCK
     Dosage: 400 MG, PER 12 HOURS
     Route: 042
     Dates: start: 20150425, end: 20150507
  6. PIPERACILLIN AND TAZOBACTAM [Suspect]
     Active Substance: PIPERACILLIN SODIUM\TAZOBACTAM SODIUM
     Dosage: 4 G, Q8H
     Route: 065
  7. MOPRAL [Concomitant]
     Active Substance: OMEPRAZOLE SODIUM
     Dosage: 40 MG, QD
     Route: 065
     Dates: start: 20150531, end: 20150601
  8. CIFLOX [Concomitant]
     Active Substance: CIPROFLOXACIN
     Indication: PRODUCT USED FOR UNKNOWN INDICATION
     Dosage: 1.2 G, QD
     Route: 065
     Dates: start: 20150425, end: 20150508
  9. PIPERACILLIN AND TAZOBACTAM [Suspect]
     Active Substance: PIPERACILLIN SODIUM\TAZOBACTAM SODIUM
     Dosage: 4 G, Q8H
     Route: 042
     Dates: start: 20150425, end: 20150507
  10. TRIFLUCAN [Concomitant]
     Active Substance: FLUCONAZOLE
     Indication: CANDIDA INFECTION
     Dosage: UNK
     Route: 065
     Dates: start: 20150518, end: 20150531
  11. SYMBICORT [Concomitant]
     Active Substance: BUDESONIDE\FORMOTEROL FUMARATE DIHYDRATE
     Dosage: 1 DF, BID
     Route: 065
  12. ACET//PARACETAMOL [Concomitant]
     Indication: PRODUCT USED FOR UNKNOWN INDICATION
     Route: 065
  13. PIPERACILLIN AND TAZOBACTAM [Suspect]
     Active Substance: PIPERACILLIN SODIUM\TAZOBACTAM SODIUM
     Indication: PRODUCT USED FOR UNKNOWN INDICATION
     Dosage: 4 G, Q8H
     Route: 042
  14. MOPRAL [Concomitant]
     Active Substance: OMEPRAZOLE SODIUM
     Indication: PRODUCT USED FOR UNKNOWN INDICATION
     Dosage: 40 MG, QD
     Route: 065
     Dates: start: 20150527, end: 20150529
  15. AIROMIR [Concomitant]
     Active Substance: ALBUTEROL SULFATE
     Dosage: 2 DF, QD
     Route: 055
  16. TARGOCID [Suspect]
     Active Substance: TEICOPLANIN
     Dosage: 8 PM
     Route: 065
  17. SEEBRI [Concomitant]
     Active Substance: GLYCOPYRRONIUM
     Dosage: 1 DF, QD
     Route: 065
  18. NEFOPAM [Suspect]
     Active Substance: NEFOPAM
     Indication: PRODUCT USED FOR UNKNOWN INDICATION
     Route: 065

REACTIONS (20)
  - Dermatitis exfoliative [Recovered/Resolved]
  - Burning sensation [Unknown]
  - Staphylococcal infection [Unknown]
  - Oedema [Unknown]
  - Arterial thrombosis [Unknown]
  - Quadriplegia [Unknown]
  - Rash erythematous [Unknown]
  - Hypoalbuminaemia [Unknown]
  - Red man syndrome [Unknown]
  - Toxic epidermal necrolysis [Unknown]
  - Candida infection [Unknown]
  - Eosinophilia [Recovered/Resolved]
  - Pleural effusion [Unknown]
  - Asthenia [Unknown]
  - Renal failure [Unknown]
  - Blister [Unknown]
  - Nikolsky^s sign [Unknown]
  - Diarrhoea [Unknown]
  - Linear IgA disease [Recovered/Resolved]
  - Skin exfoliation [Recovered/Resolved]

NARRATIVE: CASE EVENT DATE: 20150412
